FAERS Safety Report 7397258-6 (Version None)
Quarter: 2011Q2

REPORT INFORMATION
  Report Type: 
  Country: None (occurrence: None)
  Receive Date: 20110406
  Receipt Date: 20110329
  Transmission Date: 20111010
  Serious: Yes (Other)
  Sender: FDA-Public Use
  Company Number: CH-ABBOTT-10P-151-0683712-00

PATIENT
  Age: 77 Year
  Sex: Male

DRUGS (3)
  1. OMEPRAZOLE [Concomitant]
     Indication: ULCER
  2. LUCRIN DEPOT 3 MONATE [Suspect]
     Indication: PROSTATE CANCER
     Route: 058
     Dates: start: 20070401, end: 20070401
  3. CASODEX [Concomitant]
     Indication: PRODUCT USED FOR UNKNOWN INDICATION

REACTIONS (7)
  - CATARACT [None]
  - KNEE ARTHROPLASTY [None]
  - PSYCHIATRIC DECOMPENSATION [None]
  - URINARY INCONTINENCE [None]
  - VERBAL ABUSE [None]
  - AGGRESSION [None]
  - DYSURIA [None]
